FAERS Safety Report 8345737-7 (Version None)
Quarter: 2012Q2

REPORT INFORMATION
  Report Type: 
  Country: None (occurrence: None)
  Receive Date: 20120508
  Receipt Date: 20120424
  Transmission Date: 20120825
  Serious: Yes (Hospitalization, Other)
  Sender: FDA-Public Use
  Company Number: US-ELI_LILLY_AND_COMPANY-US201010000081

PATIENT
  Sex: Female

DRUGS (13)
  1. FORTEO [Suspect]
     Dosage: 20 UG, DAILY (1/D)
  2. FORTEO [Suspect]
     Dosage: 20 UG, DAILY (1/D)
     Route: 065
  3. FORTEO [Suspect]
     Dosage: 20 UG, QD
  4. FORTEO [Suspect]
     Dosage: 20 UG, QD
  5. ANTIBIOTICS [Concomitant]
  6. FORTEO [Suspect]
     Indication: OSTEOPOROSIS
     Dosage: 20 UG, DAILY (1/D)
     Dates: start: 20100913
  7. FORTEO [Suspect]
     Dosage: 20 UG, QD
  8. AVELOX [Concomitant]
  9. FORTEO [Suspect]
     Dosage: 20 UG, QD
     Route: 065
  10. FORTEO [Suspect]
     Dosage: 20 UG, QD
  11. FORTEO [Suspect]
     Dosage: 20 UG, DAILY (1/D)
     Route: 065
  12. FORTEO [Suspect]
     Dosage: 20 UG, QD
  13. FORTEO [Suspect]
     Dosage: 20 UG, QD

REACTIONS (34)
  - SINUSITIS [None]
  - JOINT INJURY [None]
  - EYE DISORDER [None]
  - CONTUSION [None]
  - BACK DISORDER [None]
  - HYPERHIDROSIS [None]
  - ARTHRITIS [None]
  - PAIN IN EXTREMITY [None]
  - HEAD INJURY [None]
  - BLOOD TEST ABNORMAL [None]
  - HEADACHE [None]
  - COUGH [None]
  - SPINAL DISORDER [None]
  - MUSCULOSKELETAL DISORDER [None]
  - LIMB INJURY [None]
  - ARTHRALGIA [None]
  - NASOPHARYNGITIS [None]
  - ARTHROPATHY [None]
  - OEDEMA PERIPHERAL [None]
  - HYPERSENSITIVITY [None]
  - DISCOMFORT [None]
  - MUSCLE SPASMS [None]
  - FATIGUE [None]
  - FALL [None]
  - VITAMIN D DECREASED [None]
  - INJECTION SITE HAEMORRHAGE [None]
  - NAUSEA [None]
  - PNEUMONIA [None]
  - JOINT SWELLING [None]
  - CATARACT [None]
  - PYREXIA [None]
  - WEIGHT DECREASED [None]
  - MALAISE [None]
  - RASH [None]
